FAERS Safety Report 9404848 (Version 1)
Quarter: 2013Q3

REPORT INFORMATION
  Report Type: Spontaneous
  Country: FR (occurrence: FR)
  Receive Date: 20130717
  Receipt Date: 20130717
  Transmission Date: 20140515
  Serious: Yes (Hospitalization)
  Sender: FDA-Public Use
  Company Number: FR-ACTELION-A-CH2013-85708

PATIENT
  Age: 22 Year
  Sex: Male
  Weight: 43 kg

DRUGS (11)
  1. TRACLEER [Suspect]
     Indication: SYSTEMIC SCLEROSIS
     Dosage: 62.5 MG, BID
     Route: 048
     Dates: start: 2012
  2. CELLCEPT [Suspect]
     Dosage: 500 MG, BID
     Dates: start: 20130328
  3. INEXIUM [Suspect]
     Dosage: 40 MG, QD
  4. OXYNORM [Concomitant]
  5. REVATIO [Concomitant]
     Dosage: 20 MG, QD
  6. CORTANCYL [Concomitant]
     Dosage: 5 MG, QD
  7. TRIATEC [Concomitant]
     Dosage: 5 MG, BID
  8. ASPEGIC [Concomitant]
  9. LEVOTHYROX [Concomitant]
     Dosage: 12.5 ?G, QD
  10. ARANESP [Concomitant]
  11. MOTILIUM [Concomitant]

REACTIONS (6)
  - Pancytopenia [Not Recovered/Not Resolved]
  - Gastrointestinal disorder [Not Recovered/Not Resolved]
  - Vomiting [Not Recovered/Not Resolved]
  - Abdominal rigidity [Not Recovered/Not Resolved]
  - Hypokalaemia [Unknown]
  - Potentiating drug interaction [Unknown]
